FAERS Safety Report 4875809-0 (Version None)
Quarter: 2006Q1

REPORT INFORMATION
  Report Type: 
  Country: None (occurrence: None)
  Receive Date: 20060106
  Receipt Date: 20051226
  Transmission Date: 20060701
  Serious: Yes (Hospitalization)
  Sender: FDA-Public Use
  Company Number: HQWYE163103JAN06

PATIENT
  Age: 50 Year
  Sex: Male

DRUGS (10)
  1. RAPAMUNE [Suspect]
     Indication: PROPHYLAXIS AGAINST TRANSPLANT REJECTION
     Dosage: 12 MG 1X PER 1 DAY, ORAL
     Route: 048
     Dates: start: 20040725
  2. MYCOPHENOLATE MOFETIL (MYCOPHENOLATE MOFETIL, ) [Suspect]
     Indication: PROPHYLAXIS AGAINST TRANSPLANT REJECTION
     Dosage: 500 TWICE A DAY, ORAL
     Route: 048
  3. PREDNISONE [Suspect]
     Indication: PROPHYLAXIS AGAINST TRANSPLANT REJECTION
     Dosage: 10 MG DOSE, DAILY FREQUENCY NOT REPORTED, ORAL
     Route: 048
  4. ZENAPAX [Suspect]
     Indication: PROPHYLAXIS AGAINST TRANSPLANT REJECTION
  5. DIOVAN [Concomitant]
  6. ATENOLOL [Concomitant]
  7. BACTRIM [Concomitant]
  8. ZOCOR [Concomitant]
  9. NOVOLOG [Concomitant]
  10. PEPCID [Concomitant]

REACTIONS (10)
  - ABDOMINAL PAIN [None]
  - AORTIC DILATATION [None]
  - HYPERKALAEMIA [None]
  - IMMUNOSUPPRESSION [None]
  - INFECTION [None]
  - INFLUENZA LIKE ILLNESS [None]
  - MEDIASTINAL DISORDER [None]
  - METABOLIC ACIDOSIS [None]
  - NAUSEA [None]
  - VOMITING [None]
